FAERS Safety Report 15457041 (Version 2)
Quarter: 2022Q1

REPORT INFORMATION
  Report Type: Report from Study
  Country: None (occurrence: CA)
  Receive Date: 20181002
  Receipt Date: 20220105
  Transmission Date: 20220423
  Serious: Yes (Other)
  Sender: FDA-Public Use
  Company Number: CA-ASCEND THERAPEUTICS-2055598

PATIENT
  Age: 55 Year
  Sex: Female

DRUGS (15)
  1. ESTROGEL [Suspect]
     Active Substance: ESTRADIOL
     Indication: Product used for unknown indication
     Route: 065
     Dates: end: 20171228
  2. ALIROCUMAB [Suspect]
     Active Substance: ALIROCUMAB
     Route: 065
     Dates: start: 20170815
  3. PRALUENT [Suspect]
     Active Substance: ALIROCUMAB
     Route: 058
     Dates: start: 20170815
  4. Cetrizine Hydrochloride (Cetirizine Hydrochloride) [Concomitant]
     Route: 065
  5. DEXILANT [Concomitant]
     Active Substance: DEXLANSOPRAZOLE
     Route: 065
  6. MELATONIN [Concomitant]
     Active Substance: MELATONIN
     Route: 065
  7. HERBALS\TURMERIC [Concomitant]
     Active Substance: HERBALS\TURMERIC
     Route: 065
  8. Metonia (Metoclopramide Hydrochloride) [Concomitant]
     Route: 065
  9. MESALAMINE [Concomitant]
     Active Substance: MESALAMINE
     Route: 065
  10. PREGABALIN [Concomitant]
     Active Substance: PREGABALIN
     Route: 065
  11. TOPIRAMATE [Concomitant]
     Active Substance: TOPIRAMATE
     Route: 065
  12. TYLENOL [Concomitant]
     Active Substance: ACETAMINOPHEN
     Route: 065
  13. Constella (Linaclotide) [Concomitant]
     Route: 065
  14. ESTROGEL [Suspect]
     Active Substance: ESTRADIOL
     Route: 065
     Dates: end: 20171228
  15. OREGANO OIL(ORIGANUM MINUTIFLORUM OIL) [Concomitant]
     Route: 065

REACTIONS (5)
  - Lipoma [Unknown]
  - Muscle spasms [Unknown]
  - Pain in extremity [Recovering/Resolving]
  - Thrombosis [Unknown]
  - Weight bearing difficulty [Recovered/Resolved]

NARRATIVE: CASE EVENT DATE: 20170101
